FAERS Safety Report 24716356 (Version 1)
Quarter: 2024Q4

REPORT INFORMATION
  Report Type: Report from Study
  Country: US (occurrence: US)
  Receive Date: 20241210
  Receipt Date: 20241210
  Transmission Date: 20250115
  Serious: Yes (Other)
  Sender: ABBVIE
  Company Number: US-ABBVIE-6035972

PATIENT
  Age: 76 Year
  Sex: Male

DRUGS (2)
  1. HUMIRA [Suspect]
     Active Substance: ADALIMUMAB
     Indication: Crohn^s disease
     Route: 058
     Dates: start: 202212
  2. ELIQUIS [Concomitant]
     Active Substance: APIXABAN
     Indication: Product used for unknown indication

REACTIONS (8)
  - Aortic aneurysm [Not Recovered/Not Resolved]
  - Diverticulitis [Unknown]
  - Gastritis [Unknown]
  - Pulmonary thrombosis [Unknown]
  - Iron deficiency anaemia [Unknown]
  - Large intestine polyp [Unknown]
  - Mucosal inflammation [Unknown]
  - Duodenitis [Unknown]

NARRATIVE: CASE EVENT DATE: 20230101
